FAERS Safety Report 6920938-0 (Version None)
Quarter: 2010Q3

REPORT INFORMATION
  Report Type: 
  Country: None (occurrence: None)
  Receive Date: 20100812
  Receipt Date: 20100802
  Transmission Date: 20110219
  Serious: Yes (Other)
  Sender: FDA-Public Use
  Company Number: CA-PFIZER INC-2010096870

PATIENT
  Age: 54 Year
  Sex: Female

DRUGS (4)
  1. ESTRING [Suspect]
     Indication: VULVOVAGINAL DRYNESS
     Dosage: 2MG EVERY 90 DAYS
     Route: 067
     Dates: start: 20100729, end: 20100730
  2. ACETAMINOPHEN [Concomitant]
     Dosage: UNK
  3. RIVOTRIL [Concomitant]
     Indication: BACK PAIN
     Dosage: UNK
  4. FLOVENT [Concomitant]
     Indication: HYPERSENSITIVITY
     Dosage: AS NEEDED

REACTIONS (3)
  - HYPERSENSITIVITY [None]
  - URTICARIA [None]
  - VULVAL OEDEMA [None]
